FAERS Safety Report 4910812-3 (Version None)
Quarter: 2006Q1

REPORT INFORMATION
  Report Type: 
  Country: None (occurrence: None)
  Receive Date: 20060214
  Receipt Date: 20060112
  Transmission Date: 20060701
  Serious: Yes (Hospitalization, Other)
  Sender: FDA-Public Use
  Company Number: US-GLAXOSMITHKLINE-A0589021A

PATIENT
  Age: 11 Year
  Sex: Male
  Weight: 35 kg

DRUGS (5)
  1. TABLOID [Suspect]
     Dosage: 80MG PER DAY
     Route: 048
     Dates: start: 20051227, end: 20060109
  2. CYTARABINE [Concomitant]
  3. CYCLOPHOSPHAMIDE [Concomitant]
  4. PENTAMIDINE [Concomitant]
  5. VINCRISTINE [Concomitant]

REACTIONS (11)
  - ABDOMINAL PAIN [None]
  - ANOREXIA [None]
  - CAECITIS [None]
  - HEPATIC ENZYME INCREASED [None]
  - MUCOSAL INFLAMMATION [None]
  - NAUSEA [None]
  - NEUTROPENIC COLITIS [None]
  - PLEURAL EFFUSION [None]
  - PROCTITIS [None]
  - PYREXIA [None]
  - VENOOCCLUSIVE LIVER DISEASE [None]
